FAERS Safety Report 10675857 (Version 2)
Quarter: 2015Q1

REPORT INFORMATION
  Report Type: Report from Study
  Country: BE (occurrence: BE)
  Receive Date: 20141225
  Receipt Date: 20150217
  Transmission Date: 20150720
  Serious: Yes (Hospitalization, Other)
  Sender: FDA-Public Use
  Company Number: BE-BIOGENIDEC-2014BI132413

PATIENT
  Age: 60 Year
  Sex: Female

DRUGS (1)
  1. AVONEX [Suspect]
     Active Substance: INTERFERON BETA-1A
     Indication: PRODUCT USED FOR UNKNOWN INDICATION
     Route: 030
     Dates: start: 20041106

REACTIONS (10)
  - Pain [Unknown]
  - Balance disorder [Unknown]
  - Fall [Recovered/Resolved]
  - Hip fracture [Unknown]
  - Tendon rupture [Unknown]
  - Foot fracture [Unknown]
  - Spinal fracture [Unknown]
  - Bursitis [Unknown]
  - Rotator cuff syndrome [Unknown]
  - Gait disturbance [Not Recovered/Not Resolved]

NARRATIVE: CASE EVENT DATE: 2012
